FAERS Safety Report 23878166 (Version 1)
Quarter: 2024Q2

REPORT INFORMATION
  Report Type: Spontaneous
  Country: US (occurrence: US)
  Receive Date: 20240521
  Receipt Date: 20240521
  Transmission Date: 20240716
  Serious: Yes (Other)
  Sender: FDA-Public Use
  Company Number: US-Blueprint Medicines Corporation-3577

PATIENT
  Sex: Female

DRUGS (1)
  1. AYVAKIT [Suspect]
     Active Substance: AVAPRITINIB
     Indication: Systemic mastocytosis
     Route: 065

REACTIONS (7)
  - Hallucination [Unknown]
  - Aphasia [Unknown]
  - Balance disorder [Unknown]
  - Feeling hot [Unknown]
  - Memory impairment [Unknown]
  - Pain in extremity [Unknown]
  - Platelet count decreased [Unknown]
